FAERS Safety Report 23859870 (Version 1)
Quarter: 2024Q2

REPORT INFORMATION
  Report Type: Spontaneous
  Country: BR (occurrence: BR)
  Receive Date: 20240515
  Receipt Date: 20240515
  Transmission Date: 20240716
  Serious: Yes (Other)
  Sender: FDA-Public Use
  Company Number: BR-SA-2024SA144053

PATIENT
  Age: 2 Year
  Sex: Male

DRUGS (6)
  1. SABRIL [Suspect]
     Active Substance: VIGABATRIN
     Indication: Epilepsy
     Dosage: 0.5 DF, BID
     Route: 065
     Dates: start: 20230404
  2. SABRIL [Suspect]
     Active Substance: VIGABATRIN
     Indication: Infantile spasms
     Dosage: DILUTE 1 AND A HALF TABLETS IN 10ML OF DOUBLE-DISTILLED WATER, AND ADMINISTER 10ML, Q12H
     Route: 048
     Dates: start: 20230420
  3. SABRIL [Suspect]
     Active Substance: VIGABATRIN
     Dosage: DILUTE 1 AND A HALF TABLETS, Q8H
     Route: 065
     Dates: start: 20230712
  4. SABRIL [Suspect]
     Active Substance: VIGABATRIN
     Dosage: 1.5 DF, TID
     Route: 065
     Dates: start: 20231030
  5. DEPAKENE [Concomitant]
     Active Substance: VALPROIC ACID
     Indication: Epilepsy
     Dosage: 4.1 ML, BID (MORNING AND EVENING) FOR 10 DAYS
     Route: 065
     Dates: start: 20231030
  6. DEPAKENE [Concomitant]
     Active Substance: VALPROIC ACID
     Dosage: 3.8 ML, BID FOR 10 DAYS
     Route: 065

REACTIONS (4)
  - Seizure [Unknown]
  - Drug dependence [Unknown]
  - Poor quality product administered [Unknown]
  - Wrong technique in product usage process [Unknown]

NARRATIVE: CASE EVENT DATE: 20230404
